FAERS Safety Report 12771240 (Version 1)
Quarter: 2016Q3

REPORT INFORMATION
  Report Type: Spontaneous
  Country: IT (occurrence: IT)
  Receive Date: 20160922
  Receipt Date: 20160922
  Transmission Date: 20161109
  Serious: Yes (Hospitalization)
  Sender: FDA-Public Use
  Company Number: IT-SA-2016SA169939

PATIENT
  Age: 77 Year
  Sex: Male

DRUGS (3)
  1. STILNOX [Suspect]
     Active Substance: ZOLPIDEM TARTRATE
     Indication: DYSPNOEA
     Route: 065
     Dates: start: 20150205, end: 20150205
  2. UNOPROST [Concomitant]
     Route: 065
  3. LACIREX [Concomitant]
     Active Substance: LACIDIPINE
     Route: 065

REACTIONS (2)
  - Acute respiratory failure [Not Recovered/Not Resolved]
  - Drug abuse [Unknown]

NARRATIVE: CASE EVENT DATE: 20150205
